FAERS Safety Report 4451783-6 (Version None)
Quarter: 2004Q3

REPORT INFORMATION
  Report Type: 
  Country: None (occurrence: None)
  Receive Date: 20040813
  Receipt Date: 20040526
  Transmission Date: 20050211
  Serious: Yes (Hospitalization)
  Sender: FDA-Public Use
  Company Number: S04-USA-03013-01

PATIENT
  Age: 84 Year
  Sex: Male

DRUGS (2)
  1. NAMENDA [Suspect]
     Indication: DEMENTIA ALZHEIMER'S TYPE
     Dosage: 5 MG QD PO
     Route: 048
     Dates: start: 20040521, end: 20040522
  2. RISPERIDONE [Concomitant]

REACTIONS (3)
  - AGITATION [None]
  - PNEUMONIA [None]
  - URINARY TRACT INFECTION [None]
